FAERS Safety Report 10301896 (Version 1)
Quarter: 2014Q3

REPORT INFORMATION
  Report Type: Spontaneous
  Country: US (occurrence: None)
  Receive Date: 20140709
  Receipt Date: 20140709
  Transmission Date: 20150326
  Serious: No
  Sender: FDA-Public Use
  Company Number: None

PATIENT
  Age: 63 Year
  Sex: Female

DRUGS (10)
  1. RIBAVIRIN 200MG ZYDUS [Suspect]
     Active Substance: RIBAVIRIN
     Indication: HEPATITIS C
     Dosage: 600MG Q AM,  400MG Q PM  QD  PO
     Route: 048
  2. LORAZEPAM. [Concomitant]
     Active Substance: LORAZEPAM
  3. VIT D 50,000IU [Concomitant]
  4. CITALOPRAM [Concomitant]
     Active Substance: CITALOPRAM HYDROBROMIDE
  5. PREPOPIK PAK [Concomitant]
  6. VICODIN [Concomitant]
     Active Substance: ACETAMINOPHEN\HYDROCODONE BITARTRATE
  7. BUPROPION [Concomitant]
     Active Substance: BUPROPION
  8. SOVALDI [Suspect]
     Active Substance: SOFOSBUVIR
     Indication: HEPATITIS C
     Route: 048
  9. OMEPRAZOLE. [Concomitant]
     Active Substance: OMEPRAZOLE
  10. BUTRANS [Concomitant]
     Active Substance: BUPRENORPHINE

REACTIONS (7)
  - Fatigue [None]
  - Dyspnoea [None]
  - Sleep disorder [None]
  - Diarrhoea [None]
  - Headache [None]
  - Nausea [None]
  - Cardiac flutter [None]

NARRATIVE: CASE EVENT DATE: 201406
